FAERS Safety Report 5651565-3 (Version None)
Quarter: 2008Q1

REPORT INFORMATION
  Report Type: 
  Country: None (occurrence: None)
  Receive Date: 20080131
  Receipt Date: 20071114
  Transmission Date: 20080703
  Serious: No
  Sender: FDA-Public Use
  Company Number: US200711003607

PATIENT
  Age: 71 Year
  Sex: Male
  Weight: 97.5 kg

DRUGS (15)
  1. BYETTA [Suspect]
     Indication: TYPE 2 DIABETES MELLITUS
     Dosage: 5 UG, 2/D, SUBCUTANEOUS
     Route: 058
     Dates: start: 20071114
  2. DRUG USED IN DIABETES [Concomitant]
  3. METFORMIN HCL [Concomitant]
  4. COREG [Concomitant]
  5. ACETYLSALICYLIC ACID SRT [Concomitant]
  6. COLACE (DOCUSATE SODIUM) [Concomitant]
  7. FOLIC ACID [Concomitant]
  8. ALTACE [Concomitant]
  9. FERROUS SULFATE TAB [Concomitant]
  10. CO-Q10 (UBIDECARENONE) [Concomitant]
  11. AMLODIPINE [Concomitant]
  12. OMEGA 3 FISH OIL (FISH OIL) [Concomitant]
  13. VYTORIN [Concomitant]
  14. NEXIUM [Concomitant]
  15. HYDROCHLORZIDE (HYDROCHLOROTHIAZIDE) [Concomitant]

REACTIONS (1)
  - BLOOD GLUCOSE INCREASED [None]
